FAERS Safety Report 6818582-9 (Version None)
Quarter: 2010Q3

REPORT INFORMATION
  Report Type: 
  Country: None (occurrence: None)
  Receive Date: 20100706
  Receipt Date: 20090210
  Transmission Date: 20110219
  Serious: No
  Sender: FDA-Public Use
  Company Number: US-PFIZER INC-2009169016

PATIENT
  Sex: Male
  Weight: 102.04 kg

DRUGS (3)
  1. ZITHROMAX [Suspect]
     Indication: NASOPHARYNGITIS
     Dosage: 250 MG, 1X/DAY
     Dates: start: 20090206, end: 20090210
  2. TYLENOL [Concomitant]
  3. MULTI-VITAMINS [Concomitant]

REACTIONS (2)
  - FEELING HOT [None]
  - PERIPHERAL COLDNESS [None]
